FAERS Safety Report 6112372-0 (Version None)
Quarter: 2009Q1

REPORT INFORMATION
  Report Type: 
  Country: None (occurrence: None)
  Receive Date: 20090311
  Receipt Date: 20090311
  Transmission Date: 20090719
  Serious: No
  Sender: FDA-Public Use
  Company Number: None

PATIENT
  Sex: Male
  Weight: 49.8957 kg

DRUGS (2)
  1. LEVETIRACET, 100MG/ML SO, (ROXANE) [Suspect]
     Indication: EPILEPSY
     Dosage: 1 TSP BID BY MOUTH
     Route: 048
     Dates: start: 20090206, end: 20090301
  2. LEVETIRACET, 100MG/ML SO, (ROXANE) [Suspect]
     Indication: GRAND MAL CONVULSION
     Dosage: 1 TSP BID BY MOUTH
     Route: 048
     Dates: start: 20090206, end: 20090301

REACTIONS (7)
  - ABNORMAL BEHAVIOUR [None]
  - AGGRESSION [None]
  - CONVULSION [None]
  - PAIN [None]
  - SOMNOLENCE [None]
  - THERAPEUTIC RESPONSE UNEXPECTED WITH DRUG SUBSTITUTION [None]
  - TREATMENT NONCOMPLIANCE [None]
